FAERS Safety Report 23897927 (Version 1)
Quarter: 2024Q2

REPORT INFORMATION
  Report Type: Spontaneous
  Country: ZA (occurrence: None)
  Receive Date: 20240524
  Receipt Date: 20240524
  Transmission Date: 20240715
  Serious: Yes (Hospitalization, Other)
  Sender: FDA-Public Use
  Company Number: 2024A121519

PATIENT
  Age: 85 Year
  Sex: Female

DRUGS (9)
  1. BUDESONIDE\FORMOTEROL [Suspect]
     Active Substance: BUDESONIDE\FORMOTEROL
     Indication: Asthma
     Dosage: 60 DOSE 160/4 5 MCG UNKNOWN
     Route: 055
  2. MONTELUKAST SODIUM [Concomitant]
     Active Substance: MONTELUKAST SODIUM
     Indication: Asthma
     Route: 048
  3. ASTHAVENT ECOHALER [Concomitant]
     Indication: Bronchospasm
     Dosage: 200DOSE 100 MCG
     Route: 048
  4. VALSARTAN [Concomitant]
     Active Substance: VALSARTAN
     Indication: Hypertension
     Route: 048
  5. CARVEDILOL [Concomitant]
     Active Substance: CARVEDILOL
     Route: 048
  6. CELECOXIB [Concomitant]
     Active Substance: CELECOXIB
     Indication: Pain
     Route: 048
  7. OMEPRAZOLE [Concomitant]
     Active Substance: DONEPEZIL HYDROCHLORIDE\OMEPRAZOLE\OMEPRAZOLE MAGNESIUM
     Indication: Ulcer
     Route: 048
  8. LASIX [Concomitant]
     Active Substance: FUROSEMIDE
     Indication: Hypertension
  9. CLOPIDOGREL BISULFATE [Concomitant]
     Active Substance: CLOPIDOGREL BISULFATE
     Indication: Thrombosis

REACTIONS (8)
  - Emotional distress [Unknown]
  - Blood pressure abnormal [Unknown]
  - Feeling abnormal [Unknown]
  - Illness [Unknown]
  - Loss of consciousness [Unknown]
  - Myocardial infarction [Unknown]
  - COVID-19 [Unknown]
  - Dyspnoea [Unknown]
